FAERS Safety Report 4263683-5 (Version None)
Quarter: 2004Q1

REPORT INFORMATION
  Report Type: 
  Country: None (occurrence: None)
  Receive Date: 20040102
  Receipt Date: 20031219
  Transmission Date: 20041129
  Serious: Yes (Other)
  Sender: FDA-Public Use
  Company Number: 2003119205

PATIENT
  Age: 29 Year
  Sex: Female

DRUGS (1)
  1. ATARAX [Suspect]
     Indication: URTICARIA
     Dosage: 50 MG (DAILY), ORAL
     Route: 048
     Dates: start: 20031114, end: 20031118

REACTIONS (2)
  - HUNGER [None]
  - LOSS OF CONSCIOUSNESS [None]
